FAERS Safety Report 8469820-0 (Version None)
Quarter: 2012Q2

REPORT INFORMATION
  Report Type: 
  Country: None (occurrence: None)
  Receive Date: 20120626
  Receipt Date: 20120620
  Transmission Date: 20120825
  Serious: Yes (Other)
  Sender: FDA-Public Use
  Company Number: US-RB-041096-12

PATIENT
  Sex: Male

DRUGS (6)
  1. STOOL SOFTENERS [Suspect]
     Indication: CONSTIPATION
     Dosage: DOSING DETAILS UNKNOWN
     Route: 064
     Dates: start: 20080101, end: 20090527
  2. VITAMIN AND MINERAL PRENATAL SUPPLEMENT W/ FOLIC ACID CAP [Suspect]
     Indication: PREGNANCY
     Dosage: DOSING DETAILS UNKNOWN
     Route: 064
     Dates: start: 20080101, end: 20090527
  3. NAUSEA MEDICATION [Suspect]
     Indication: NAUSEA
     Dosage: DOSING DETAILS UNKNOWN
     Route: 064
     Dates: start: 20080101, end: 20090527
  4. SUBUTEX [Suspect]
     Indication: DRUG DEPENDENCE
     Dosage: VARIOUS DOSES FROM 4 MG TO 20 MG DAILY
     Route: 064
     Dates: start: 20080901, end: 20090527
  5. NICOTINE [Suspect]
     Indication: NICOTINE DEPENDENCE
     Dosage: 2 CIGARETTES PER DAY
     Route: 064
     Dates: start: 20080901, end: 20090527
  6. SUBOXONE [Suspect]
     Indication: DRUG DEPENDENCE
     Dosage: 16-24 MG DAILY
     Route: 064
     Dates: start: 20080901, end: 20080901

REACTIONS (3)
  - DRUG WITHDRAWAL SYNDROME NEONATAL [None]
  - FOETAL EXPOSURE DURING PREGNANCY [None]
  - SPEECH DISORDER DEVELOPMENTAL [None]
